FAERS Safety Report 12379883 (Version 1)
Quarter: 2016Q2

REPORT INFORMATION
  Report Type: Other
  Country: IN (occurrence: IN)
  Receive Date: 20160518
  Receipt Date: 20160518
  Transmission Date: 20160815
  Serious: Yes (Other)
  Sender: FDA-Public Use
  Company Number: IN-LUPIN PHARMACEUTICALS INC.-2016-00869

PATIENT
  Sex: Male

DRUGS (6)
  1. TRIFLUPERAZINE [Suspect]
     Active Substance: TRIFLUOPERAZINE\TRIFLUOPERAZINE HYDROCHLORIDE
     Indication: HALLUCINATION, AUDITORY
     Dosage: UP TO 20 MG/DAY
     Route: 065
  2. RISPERIDONE. [Suspect]
     Active Substance: RISPERIDONE
     Indication: SCHIZOPHRENIA
  3. RISPERIDONE. [Suspect]
     Active Substance: RISPERIDONE
     Indication: HALLUCINATION, AUDITORY
     Dosage: UP TO 8 MG/DAY
     Route: 065
  4. TRIFLUPERAZINE [Suspect]
     Active Substance: TRIFLUOPERAZINE\TRIFLUOPERAZINE HYDROCHLORIDE
     Indication: SCHIZOPHRENIA
  5. QUETIAPINE. [Suspect]
     Active Substance: QUETIAPINE
     Indication: HALLUCINATION, AUDITORY
     Dosage: UP TO 600 MG/DAY
     Route: 065
  6. QUETIAPINE. [Suspect]
     Active Substance: QUETIAPINE
     Indication: SCHIZOPHRENIA
     Dosage: 200 MG
     Route: 065

REACTIONS (3)
  - Lethargy [Unknown]
  - Oculogyric crisis [Recovered/Resolved]
  - Sedation [Recovering/Resolving]
